FAERS Safety Report 5175300-0 (Version None)
Quarter: 2006Q4

REPORT INFORMATION
  Report Type: 
  Country: None (occurrence: None)
  Receive Date: 20061211
  Receipt Date: 20061211
  Transmission Date: 20070319
  Serious: Yes (Hospitalization)
  Sender: FDA-Public Use
  Company Number: None

PATIENT
  Sex: Male
  Weight: 81.6475 kg

DRUGS (1)
  1. AVELOX [Suspect]
     Indication: PNEUMONIA
     Dosage: 400 MG  DAILY  PO
     Route: 048

REACTIONS (6)
  - CHILLS [None]
  - DYSPNOEA [None]
  - EXTRAOCULAR MUSCLE DISORDER [None]
  - FEELING COLD [None]
  - MUSCULAR WEAKNESS [None]
  - PARAESTHESIA [None]
